FAERS Safety Report 8885833 (Version 2)
Quarter: 2012Q4

REPORT INFORMATION
  Report Type: 
  Country: US (occurrence: US)
  Receive Date: 20121101
  Receipt Date: 20121210
  Transmission Date: 20130627
  Serious: No
  Sender: FDA-Public Use
  Company Number: US-009507513-1210USA013700

PATIENT
  Age: 59 Year
  Sex: Female
  Weight: 133.79 kg

DRUGS (4)
  1. SAPHRIS [Suspect]
     Indication: BIPOLAR DISORDER
     Dosage: 10 mg, bid
     Route: 060
     Dates: start: 20120709, end: 20121019
  2. SAPHRIS [Suspect]
     Dosage: 5 mg, bid
     Route: 060
     Dates: start: 2012
  3. DEPAKOTE [Concomitant]
  4. TOPAMAX [Concomitant]

REACTIONS (1)
  - Nocturia [Recovered/Resolved]
